FAERS Safety Report 5677237-7 (Version None)
Quarter: 2008Q1

REPORT INFORMATION
  Report Type: 
  Country: None (occurrence: None)
  Receive Date: 20080321
  Receipt Date: 20080321
  Transmission Date: 20080703
  Serious: Yes (Hospitalization)
  Sender: FDA-Public Use
  Company Number: None

PATIENT
  Sex: Female
  Weight: 64.7 kg

DRUGS (1)
  1. FAMOTIDINE   20MG/2ML  VIAL  BAXTER [Suspect]
     Indication: GASTROOESOPHAGEAL REFLUX DISEASE
     Dosage: 20MG  Q12H   IV BOLUS
     Route: 040
     Dates: start: 20080303, end: 20080311

REACTIONS (1)
  - THROMBOCYTOPENIA [None]
